FAERS Safety Report 4462206-5 (Version None)
Quarter: 2004Q3

REPORT INFORMATION
  Report Type: 
  Country: None (occurrence: None)
  Receive Date: 20040929
  Receipt Date: 20020724
  Transmission Date: 20050211
  Serious: Yes (Hospitalization)
  Sender: FDA-Public Use
  Company Number: NL-ROCHE-318029

PATIENT
  Age: 9 Year
  Sex: Female

DRUGS (6)
  1. CELLCEPT [Suspect]
     Route: 048
  2. PREDNISONE [Suspect]
     Route: 048
  3. PREDNISONE [Suspect]
     Route: 048
  4. IMURAN [Suspect]
     Route: 065
  5. CSA [Suspect]
     Route: 065
  6. CSA [Suspect]
     Route: 065

REACTIONS (2)
  - BRONCHIECTASIS [None]
  - PRODUCTIVE COUGH [None]
